FAERS Safety Report 13229596 (Version 2)
Quarter: 2017Q1

REPORT INFORMATION
  Report Type: Report from Study
  Country: JP (occurrence: JP)
  Receive Date: 20170214
  Receipt Date: 20170224
  Transmission Date: 20170428
  Serious: Yes (Hospitalization, Other)
  Sender: FDA-Public Use
  Company Number: JP-AMGEN-JPNCT2017020341

PATIENT
  Age: 71 Year
  Sex: Female
  Weight: 50 kg

DRUGS (31)
  1. DENOSUMAB [Suspect]
     Active Substance: DENOSUMAB
     Dosage: 60 MG, Q3MO
     Route: 058
     Dates: start: 20150707
  2. BUCILLAMINE [Concomitant]
     Active Substance: BUCILLAMINE
     Indication: RHEUMATOID ARTHRITIS
     Dosage: 100 MG, TID
     Route: 048
     Dates: start: 20160913
  3. DENOTAS [Concomitant]
     Active Substance: CALCIUM CARBONATE\CHOLECALCIFEROL\MAGNESIUM CARBONATE
     Indication: MINERAL SUPPLEMENTATION
  4. ADOAIR [Concomitant]
     Active Substance: FLUTICASONE PROPIONATE\SALMETEROL XINAFOATE
     Indication: PRODUCT USED FOR UNKNOWN INDICATION
     Dosage: 1 DF, BID
     Route: 055
  5. LEXOTAN [Concomitant]
     Active Substance: BROMAZEPAM
     Indication: PRODUCT USED FOR UNKNOWN INDICATION
     Dosage: 2 MG, BID
     Route: 048
  6. SPIROPENT [Concomitant]
     Active Substance: CLENBUTEROL HYDROCHLORIDE
     Indication: PRODUCT USED FOR UNKNOWN INDICATION
     Dosage: 10 MG, BID
     Route: 048
     Dates: start: 20160503
  7. RINDERON VG [Concomitant]
     Active Substance: BETAMETHASONE VALERATE\GENTAMICIN SULFATE
     Indication: PRODUCT USED FOR UNKNOWN INDICATION
     Dosage: OPTIMAL DOSE, BID
     Route: 062
     Dates: start: 20160706
  8. CARERAM [Concomitant]
     Active Substance: IGURATIMOD
     Indication: RHEUMATOID ARTHRITIS
     Dosage: 25 MG, BID
     Route: 048
  9. CLARITH [Concomitant]
     Active Substance: CLARITHROMYCIN
     Indication: PRODUCT USED FOR UNKNOWN INDICATION
     Dosage: 200 MG, QD
     Route: 048
     Dates: start: 20151122
  10. REBAMIPIDE [Concomitant]
     Active Substance: REBAMIPIDE
     Indication: GASTRITIS PROPHYLAXIS
     Dosage: 100 MG, TID
     Route: 048
  11. PRANLUKAST [Concomitant]
     Active Substance: PRANLUKAST
     Indication: PRODUCT USED FOR UNKNOWN INDICATION
     Dosage: 225 MG, BID
     Route: 048
     Dates: start: 20160406
  12. MEDICON [Concomitant]
     Active Substance: DEXTROMETHORPHAN HYDROBROMIDE
     Indication: NASOPHARYNGITIS
     Dosage: 15 MG, QD
     Route: 048
     Dates: start: 20160710
  13. SATOSALBE [Concomitant]
     Active Substance: ZINC OXIDE
     Indication: PRODUCT USED FOR UNKNOWN INDICATION
     Dosage: OPTIMAL DOSE, QD
     Route: 062
     Dates: start: 20150908
  14. LACRIMIN [Concomitant]
     Active Substance: BENOXINATE HYDROCHLORIDE
     Indication: PRODUCT USED FOR UNKNOWN INDICATION
     Dosage: OPTIMAL DOSE, TID
     Route: 047
  15. SANBETASON [Concomitant]
     Active Substance: DEXAMETHASONE
     Indication: PRODUCT USED FOR UNKNOWN INDICATION
     Dosage: 3 DROPS, BID
     Route: 001
     Dates: start: 20170110, end: 20170116
  16. LOXOPROFEN NA [Concomitant]
     Active Substance: LOXOPROFEN SODIUM
     Dosage: 100 MG, QD
     Route: 062
     Dates: start: 20160510
  17. NEXIUM [Concomitant]
     Active Substance: ESOMEPRAZOLE MAGNESIUM
     Indication: PRODUCT USED FOR UNKNOWN INDICATION
     Dosage: 10 MG, BID
     Route: 048
  18. CLENAFIN [Concomitant]
     Active Substance: EFINACONAZOLE
     Indication: PRODUCT USED FOR UNKNOWN INDICATION
     Dosage: OPTIMAL DOSE, QD
     Route: 061
     Dates: start: 20161011
  19. LOXOPROFEN NA [Concomitant]
     Active Substance: LOXOPROFEN SODIUM
     Indication: RHEUMATOID ARTHRITIS
     Dosage: 100 MG, QD
     Route: 062
     Dates: start: 20140909
  20. ETIZOLAM [Concomitant]
     Active Substance: ETIZOLAM
     Indication: PRODUCT USED FOR UNKNOWN INDICATION
     Dosage: 0.5 MG, QD
     Route: 048
     Dates: start: 20160510
  21. AMOXAN [Concomitant]
     Active Substance: AMOXAPINE
     Indication: PRODUCT USED FOR UNKNOWN INDICATION
     Dosage: 10 MG, BID
     Route: 048
  22. PL [Concomitant]
     Active Substance: ACETAMINOPHEN\CAFFEINE\PROMETHAZINE\SALICYLAMIDE
     Indication: PRODUCT USED FOR UNKNOWN INDICATION
     Dosage: 1 G, QD
     Route: 048
     Dates: start: 20170113, end: 20170113
  23. PREDNISOLONE. [Suspect]
     Active Substance: PREDNISOLONE
     Indication: RHEUMATOID ARTHRITIS
     Dosage: 4 MG, QD
     Route: 048
     Dates: start: 20151111
  24. SUMILU [Concomitant]
     Active Substance: FELBINAC
     Indication: RHEUMATOID ARTHRITIS
     Dosage: OPTIMAL DOSE, QD
     Route: 062
     Dates: start: 20160614
  25. DENOTAS [Concomitant]
     Active Substance: CALCIUM CARBONATE\CHOLECALCIFEROL\MAGNESIUM CARBONATE
     Indication: VITAMIN D DEFICIENCY
     Dosage: 2 DF, QD
     Route: 048
     Dates: start: 20140702
  26. LOXOPROFEN SODIUM [Concomitant]
     Active Substance: LOXOPROFEN SODIUM
     Indication: RHEUMATOID ARTHRITIS
     Dosage: 60 MG, BID
     Route: 048
     Dates: start: 20141202
  27. NAUZELIN [Concomitant]
     Active Substance: DOMPERIDONE
     Indication: PRODUCT USED FOR UNKNOWN INDICATION
     Dosage: 10 MG, BID
     Route: 048
  28. BOIOGITO [Concomitant]
     Indication: RHEUMATOID ARTHRITIS
     Dosage: 2.5 G, TID
     Route: 048
     Dates: start: 20150106
  29. DENOSUMAB [Suspect]
     Active Substance: DENOSUMAB
     Indication: RHEUMATOID ARTHRITIS
     Dosage: UNK
     Route: 058
     Dates: start: 20140715
  30. MOVER [Concomitant]
     Indication: RHEUMATOID ARTHRITIS
     Dosage: 100 MG, TID
     Route: 048
  31. LOXONIN [Concomitant]
     Active Substance: LOXOPROFEN SODIUM
     Indication: RHEUMATOID ARTHRITIS
     Dosage: 100 MG, QD
     Route: 062
     Dates: start: 20160913

REACTIONS (1)
  - Spinal compression fracture [Not Recovered/Not Resolved]

NARRATIVE: CASE EVENT DATE: 20170113
